FAERS Safety Report 16397711 (Version 3)
Quarter: 2019Q4

REPORT INFORMATION
  Report Type: Other
  Country: FR (occurrence: FR)
  Receive Date: 20190606
  Receipt Date: 20191004
  Transmission Date: 20200122
  Serious: Yes (Death, Hospitalization, Other)
  Sender: FDA-Public Use
  Company Number: FR-ASTELLAS-2019US023411

PATIENT
  Age: 47 Year
  Sex: Male
  Weight: 120 kg

DRUGS (1)
  1. PROGRAF [Suspect]
     Active Substance: TACROLIMUS
     Indication: TRANSPLANT
     Dosage: 0.15 MG/KG, UNKNOWN FREQ.
     Route: 050
     Dates: start: 20190415, end: 20190415

REACTIONS (4)
  - Septic shock [Fatal]
  - Drug level increased [Recovered/Resolved]
  - Prescribed overdose [Recovered/Resolved]
  - Product prescribing error [Recovered/Resolved]

NARRATIVE: CASE EVENT DATE: 20190415
